FAERS Safety Report 20488227 (Version 1)
Quarter: 2022Q1

REPORT INFORMATION
  Report Type: Spontaneous
  Country: DE (occurrence: DE)
  Receive Date: 20220218
  Receipt Date: 20220218
  Transmission Date: 20220423
  Serious: Yes (Other)
  Sender: FDA-Public Use
  Company Number: DE-JNJFOC-20220225567

PATIENT

DRUGS (1)
  1. STELARA [Suspect]
     Active Substance: USTEKINUMAB
     Indication: Crohn^s disease
     Dosage: ADMINISTERED 2 TIMES
     Route: 058
     Dates: start: 202001, end: 202005

REACTIONS (5)
  - Abscess [Unknown]
  - Anal fistula [Unknown]
  - Haematochezia [Unknown]
  - Abdominal pain [Unknown]
  - Intestinal mucosal hypertrophy [Unknown]

NARRATIVE: CASE EVENT DATE: 20200101
